FAERS Safety Report 12499216 (Version 1)
Quarter: 2016Q2

REPORT INFORMATION
  Report Type: Spontaneous
  Country: US (occurrence: None)
  Receive Date: 20160624
  Receipt Date: 20160624
  Transmission Date: 20160815
  Serious: No
  Sender: FDA-Public Use
  Company Number: None

PATIENT
  Age: 69 Year
  Sex: Female
  Weight: 84.82 kg

DRUGS (13)
  1. MULTIVITAMIN [Concomitant]
     Active Substance: VITAMINS
  2. VALLERIAN [Concomitant]
  3. SIMVISTATIN [Concomitant]
     Active Substance: SIMVASTATIN
  4. PHENERGAN [Concomitant]
     Active Substance: PROMETHAZINE HYDROCHLORIDE
  5. PERCOCET [Concomitant]
     Active Substance: ACETAMINOPHEN\OXYCODONE HYDROCHLORIDE
  6. CALCIUM [Concomitant]
     Active Substance: CALCIUM
  7. ZECUITY [Suspect]
     Active Substance: SUMATRIPTAN SUCCINATE
     Indication: MIGRAINE
     Route: 062
     Dates: start: 20160527, end: 20160612
  8. AMLODOPINE [Concomitant]
     Active Substance: AMLODIPINE BESYLATE
  9. WELLBUTRIN [Concomitant]
     Active Substance: BUPROPION HYDROCHLORIDE
  10. BONIVA [Concomitant]
     Active Substance: IBANDRONATE SODIUM
  11. PILCOCARPINE [Concomitant]
  12. MELATONIN [Concomitant]
     Active Substance: MELATONIN
  13. ZALEPLON. [Concomitant]
     Active Substance: ZALEPLON

REACTIONS (4)
  - Device leakage [None]
  - Application site burn [None]
  - Application site scar [None]
  - Application site erythema [None]

NARRATIVE: CASE EVENT DATE: 20160527
